FAERS Safety Report 9559281 (Version 2)
Quarter: 2013Q4

REPORT INFORMATION
  Report Type: Spontaneous
  Country: US (occurrence: None)
  Receive Date: 20130924
  Receipt Date: 20131028
  Transmission Date: 20140711
  Serious: Yes (Hospitalization)
  Sender: FDA-Public Use
  Company Number: 2013US002494

PATIENT
  Age: 59 Year
  Sex: Female

DRUGS (3)
  1. ICLUSIG [Suspect]
     Route: 048
  2. DASATINIB [Suspect]
  3. HYDROXYUREA [Suspect]

REACTIONS (1)
  - Malignant neoplasm progression [None]
